FAERS Safety Report 7925984-6 (Version None)
Quarter: 2011Q4

REPORT INFORMATION
  Report Type: 
  Country: None (occurrence: None)
  Receive Date: 20111118
  Receipt Date: 20110415
  Transmission Date: 20120403
  Serious: No
  Sender: FDA-Public Use
  Company Number: US-AMGEN-USASP2011020214

PATIENT
  Age: 60 Year
  Sex: Female

DRUGS (2)
  1. ENBREL [Suspect]
     Indication: RHEUMATOID ARTHRITIS
     Route: 058
     Dates: start: 20101205
  2. ENBREL [Suspect]
     Indication: PSORIASIS

REACTIONS (5)
  - RHEUMATOID ARTHRITIS [None]
  - BRONCHITIS [None]
  - EAR INFECTION [None]
  - PSORIASIS [None]
  - SINUSITIS [None]
